FAERS Safety Report 6937525-0 (Version None)
Quarter: 2010Q3

REPORT INFORMATION
  Report Type: 
  Country: None (occurrence: None)
  Receive Date: 20100823
  Receipt Date: 20100813
  Transmission Date: 20110219
  Serious: Yes (Other)
  Sender: FDA-Public Use
  Company Number: US-AMGEN-QUU431156

PATIENT
  Sex: Female

DRUGS (2)
  1. ENBREL [Suspect]
     Indication: PSORIATIC ARTHROPATHY
     Route: 058
     Dates: start: 20050101, end: 20060101
  2. ENBREL [Suspect]
     Indication: PSORIASIS

REACTIONS (9)
  - BACK PAIN [None]
  - GRIP STRENGTH DECREASED [None]
  - HEPATITIS C VIRUS TEST POSITIVE [None]
  - JOINT DISLOCATION [None]
  - PAIN IN EXTREMITY [None]
  - PANIC ATTACK [None]
  - PSORIASIS [None]
  - PSORIATIC ARTHROPATHY [None]
  - SUICIDAL IDEATION [None]
